FAERS Safety Report 7908018-9 (Version None)
Quarter: 2011Q4

REPORT INFORMATION
  Report Type: 
  Country: None (occurrence: None)
  Receive Date: 20111110
  Receipt Date: 20111101
  Transmission Date: 20120403
  Serious: Yes (Hospitalization)
  Sender: FDA-Public Use
  Company Number: US-ASTRAZENECA-2011SE58952

PATIENT
  Age: 64 Year
  Sex: Female
  Weight: 74.8 kg

DRUGS (6)
  1. TRAZODONE HCL [Concomitant]
     Dosage: AT NIGHT
  2. SEROQUEL [Suspect]
     Indication: BIPOLAR DISORDER
     Route: 048
     Dates: start: 20060101
  3. SEROQUEL [Suspect]
     Route: 048
  4. ATIVAN [Concomitant]
  5. SEROQUEL [Suspect]
     Route: 048
  6. NEURONTIN [Suspect]

REACTIONS (3)
  - MENTAL DISORDER [None]
  - NASOPHARYNGITIS [None]
  - NEUROPATHY PERIPHERAL [None]
